FAERS Safety Report 6270268-8 (Version None)
Quarter: 2009Q3

REPORT INFORMATION
  Report Type: 
  Country: None (occurrence: None)
  Receive Date: 20090716
  Receipt Date: 20090713
  Transmission Date: 20100115
  Serious: Yes (Other)
  Sender: FDA-Public Use
  Company Number: US-GENENTECH-286294

PATIENT
  Sex: Female
  Weight: 60.771 kg

DRUGS (7)
  1. XOLAIR [Suspect]
     Indication: ASTHMA
     Dosage: 375 MG, 2/MONTH
     Route: 058
     Dates: start: 20090702, end: 20090702
  2. SINGULAIR [Concomitant]
     Indication: ASTHMA
     Dosage: 10 MG, QD
     Route: 048
  3. ADVAIR DISKUS 100/50 [Concomitant]
     Indication: ASTHMA
     Dosage: UNK
     Route: 055
  4. VERAMYST [Concomitant]
     Indication: RHINITIS
     Dosage: 2 UNK, QD
     Route: 045
  5. ALLEGRA [Concomitant]
     Indication: RHINITIS
     Dosage: 180 MG, QD
     Route: 048
  6. ALBUTEROL [Concomitant]
     Indication: ASTHMA
     Dosage: 2 UNK, PRN
     Route: 055
  7. PATANASE [Suspect]
     Indication: RHINITIS
     Dosage: 2 UNK, BID
     Route: 045

REACTIONS (5)
  - DYSPNOEA [None]
  - PERIORBITAL OEDEMA [None]
  - RASH [None]
  - RESPIRATORY TRACT CONGESTION [None]
  - SWELLING FACE [None]
